FAERS Safety Report 21785263 (Version 2)
Quarter: 2023Q1

REPORT INFORMATION
  Report Type: Spontaneous
  Country: DE (occurrence: DE)
  Receive Date: 20221227
  Receipt Date: 20230103
  Transmission Date: 20230418
  Serious: Yes (Other)
  Sender: FDA-Public Use
  Company Number: DE-SANOFI-01328779

PATIENT
  Age: 42 Year
  Sex: Female
  Weight: 91 kg

DRUGS (1)
  1. INSULIN GLARGINE [Suspect]
     Active Substance: INSULIN GLARGINE
     Indication: Type 1 diabetes mellitus
     Dosage: UNK
     Route: 065

REACTIONS (3)
  - Angina pectoris [Unknown]
  - Aphonia [Unknown]
  - Hypoglycaemia [Unknown]

NARRATIVE: CASE EVENT DATE: 20220517
